FAERS Safety Report 17017233 (Version 1)
Quarter: 2019Q4

REPORT INFORMATION
  Report Type: Spontaneous
  Country: GB (occurrence: GB)
  Receive Date: 20191111
  Receipt Date: 20191111
  Transmission Date: 20200122
  Serious: Yes (Disabling, Other)
  Sender: FDA-Public Use
  Company Number: GB-009507513-1911GBR001296

PATIENT
  Age: 44 Year
  Sex: Male
  Weight: 70 kg

DRUGS (3)
  1. PROSCAR [Suspect]
     Active Substance: FINASTERIDE
     Indication: ALOPECIA
     Dosage: 1 MILLIGRAM
     Route: 048
     Dates: start: 20040303, end: 20080603
  2. HUMIRA [Concomitant]
     Active Substance: ADALIMUMAB
     Dosage: UNK
  3. FINPECIA [Suspect]
     Active Substance: FINASTERIDE
     Indication: ALOPECIA
     Dosage: 1 MILLIGRAM
     Route: 048
     Dates: start: 20040303, end: 20080603

REACTIONS (13)
  - Penile size reduced [Not Recovered/Not Resolved]
  - Seborrhoea [Unknown]
  - Sexual dysfunction [Not Recovered/Not Resolved]
  - Skin atrophy [Unknown]
  - Erectile dysfunction [Not Recovered/Not Resolved]
  - Testicular pain [Recovered/Resolved with Sequelae]
  - Ejaculation disorder [Not Recovered/Not Resolved]
  - Anxiety [Not Recovered/Not Resolved]
  - Feeling abnormal [Unknown]
  - Ejaculation failure [Not Recovered/Not Resolved]
  - Loss of libido [Not Recovered/Not Resolved]
  - Depression [Not Recovered/Not Resolved]
  - Genital paraesthesia [Not Recovered/Not Resolved]

NARRATIVE: CASE EVENT DATE: 200403
